FAERS Safety Report 8080075-1 (Version None)
Quarter: 2012Q1

REPORT INFORMATION
  Report Type: 
  Country: None (occurrence: None)
  Receive Date: 20120128
  Receipt Date: 20110824
  Transmission Date: 20120608
  Serious: No
  Sender: FDA-Public Use
  Company Number: US-ABBOTT-11P-163-0848993-00

PATIENT
  Sex: Female
  Weight: 60.836 kg

DRUGS (14)
  1. CALCIUM [Concomitant]
     Indication: MINERAL SUPPLEMENTATION
  2. POTASSIUM [Concomitant]
     Indication: UNEVALUABLE EVENT
  3. FOLIC ACID [Concomitant]
     Indication: VITAMIN SUPPLEMENTATION
  4. MELOXICAM [Concomitant]
     Indication: RHEUMATOID ARTHRITIS
  5. SIMPONI [Concomitant]
     Indication: RHEUMATOID ARTHRITIS
     Dates: end: 20110807
  6. METHOTREXATE [Concomitant]
     Indication: RHEUMATOID ARTHRITIS
  7. SINGULAIR [Concomitant]
     Indication: ASTHMA
  8. SINGULAIR [Concomitant]
     Indication: SEASONAL ALLERGY
  9. HUMIRA [Suspect]
     Indication: RHEUMATOID ARTHRITIS
     Dates: start: 20050802, end: 20110101
  10. LOVASTATIN [Concomitant]
     Indication: BLOOD CHOLESTEROL INCREASED
  11. LISINOPRIL AND HYDROCHLOROTHIAZIDE [Concomitant]
     Indication: HYPERTENSION
  12. LORATADINE [Concomitant]
     Indication: SEASONAL ALLERGY
  13. ESTRADIOL [Concomitant]
     Indication: HORMONE REPLACEMENT THERAPY
     Dosage: LOW DOSE
  14. UNKNOWN STOOL SOFTENERS [Concomitant]
     Indication: CONSTIPATION

REACTIONS (4)
  - FATIGUE [None]
  - ALOPECIA [None]
  - ARTHRALGIA [None]
  - RHEUMATOID ARTHRITIS [None]
